FAERS Safety Report 20735414 (Version 1)
Quarter: 2022Q2

REPORT INFORMATION
  Report Type: Spontaneous
  Country: US (occurrence: None)
  Receive Date: 20220421
  Receipt Date: 20220421
  Transmission Date: 20220721
  Serious: Yes (Other)
  Sender: FDA-Public Use
  Company Number: None

PATIENT
  Sex: Male

DRUGS (1)
  1. CARBOPLATIN [Suspect]
     Active Substance: CARBOPLATIN
     Indication: Tongue neoplasm malignant stage unspecified
     Route: 042

REACTIONS (4)
  - Flushing [None]
  - Erythema [None]
  - Moaning [None]
  - Tachycardia [None]

NARRATIVE: CASE EVENT DATE: 20220420
